FAERS Safety Report 19572813 (Version 1)
Quarter: 2021Q3

REPORT INFORMATION
  Report Type: Spontaneous
  Country: TW (occurrence: TW)
  Receive Date: 20210716
  Receipt Date: 20210716
  Transmission Date: 20211014
  Serious: Yes (Death, Life-Threatening, Hospitalization, Other)
  Sender: FDA-Public Use
  Company Number: TW-009507513-2107TWN001670

PATIENT
  Age: 38 Year
  Sex: Male
  Weight: 54 kg

DRUGS (4)
  1. ULTRACET [Concomitant]
     Active Substance: ACETAMINOPHEN\TRAMADOL HYDROCHLORIDE
     Dosage: UNK
     Route: 048
     Dates: start: 20190705
  2. PEMBROLIZUMAB. [Suspect]
     Active Substance: PEMBROLIZUMAB
     Indication: SQUAMOUS CELL CARCINOMA OF HEAD AND NECK
     Dosage: 200 MILLIGRAM,  THRICE WEEKLY
     Route: 042
     Dates: start: 20191212, end: 20200102
  3. STROCAIN [OXETACAINE] [Concomitant]
     Dosage: UNK
     Route: 048
     Dates: start: 20190705
  4. CELECOXIB. [Concomitant]
     Active Substance: CELECOXIB
     Dosage: UNK
     Route: 048
     Dates: start: 20191226

REACTIONS (23)
  - Dyspepsia [Unknown]
  - Septic shock [Fatal]
  - Device related infection [Unknown]
  - Hyperbilirubinaemia [Unknown]
  - Pneumonia [Not Recovered/Not Resolved]
  - General physical health deterioration [Unknown]
  - Malignant neoplasm progression [Fatal]
  - Pleural effusion [Unknown]
  - Left atrial enlargement [Unknown]
  - Multiple organ dysfunction syndrome [Fatal]
  - Bundle branch block right [Unknown]
  - Splenomegaly [Unknown]
  - Hypercalcaemia [Recovered/Resolved]
  - Pain [Unknown]
  - Anaemia [Unknown]
  - Arthralgia [Unknown]
  - Pyrexia [Unknown]
  - Incorrect dose administered [Unknown]
  - Candida infection [Unknown]
  - Aortic disorder [Unknown]
  - Goitre [Unknown]
  - Adrenomegaly [Unknown]
  - Asthenia [Unknown]

NARRATIVE: CASE EVENT DATE: 201912
